FAERS Safety Report 18517418 (Version 1)
Quarter: 2020Q4

REPORT INFORMATION
  Report Type: Spontaneous
  Country: US (occurrence: US)
  Receive Date: 20201118
  Receipt Date: 20201118
  Transmission Date: 20210114
  Serious: Yes (Life-Threatening)
  Sender: FDA-Public Use
  Company Number: None

PATIENT
  Age: 75 Year
  Sex: Female
  Weight: 70.2 kg

DRUGS (2)
  1. RUXIENCE [Suspect]
     Active Substance: RITUXIMAB-PVVR
     Indication: NON-HODGKIN^S LYMPHOMA STAGE IV
     Dosage: ?          OTHER FREQUENCY:D1, 8, 15, 22 Q28;?
     Route: 041
     Dates: start: 20201105, end: 20201105
  2. RUXIENCE [Suspect]
     Active Substance: RITUXIMAB-PVVR
     Indication: NON-HODGKIN^S LYMPHOMA STAGE IV
     Dosage: ?          OTHER FREQUENCY:D1, 8, 15, 22 Q28;?
     Route: 041
     Dates: start: 20201105, end: 20201105

REACTIONS (1)
  - Cardiac arrest [None]

NARRATIVE: CASE EVENT DATE: 20201105
